FAERS Safety Report 5276344-0 (Version None)
Quarter: 2007Q1

REPORT INFORMATION
  Report Type: 
  Country: None (occurrence: None)
  Receive Date: 20070326
  Receipt Date: 20070317
  Transmission Date: 20070707
  Serious: Yes (Other)
  Sender: FDA-Public Use
  Company Number: US-PFIZER INC-2007021075

PATIENT
  Age: 12 Year

DRUGS (1)
  1. SERTRALINE [Suspect]

REACTIONS (1)
  - BLOOD TRIGLYCERIDES INCREASED [None]
